FAERS Safety Report 4702472-1 (Version None)
Quarter: 2005Q2

REPORT INFORMATION
  Report Type: 
  Country: None (occurrence: None)
  Receive Date: 20050629
  Receipt Date: 20050330
  Transmission Date: 20051028
  Serious: Yes (Hospitalization, Other)
  Sender: FDA-Public Use
  Company Number: DE-BRISTOL-MYERS SQUIBB COMPANY-12916342

PATIENT
  Age: 68 Year
  Sex: Female
  Weight: 72 kg

DRUGS (11)
  1. CYCLOPHOSPHAMIDE [Suspect]
     Indication: BREAST CANCER
     Dosage: 05-APR-2005: 4325 MG; (2500 MG/M2 ON DAY 1 OF A 15-DAY CYCLE FOR 3 CYCLES)
     Dates: start: 20050322, end: 20050419
  2. TAXOL [Suspect]
     Indication: BREAST CANCER
     Dosage: START DATE:  08-FEB-2005; (225 MG/M2 ON DAY 1 OF A 15-DAY CYCLE FOR 3 CYCLES)
     Dates: start: 20050308, end: 20050308
  3. EPIRUBICIN [Suspect]
     Indication: BREAST CANCER
     Dosage: (DAY 1 OF A 15-DAY CYCLE FOR 3 CYCLES); TX START 28-DEC-2005
     Route: 042
     Dates: start: 20050125, end: 20050125
  4. ARANESP [Concomitant]
     Dosage: RECEIVED FROM 28-DEC-2004 UNTIL 11-MAY-2005.
     Route: 058
     Dates: start: 20041228, end: 20050511
  5. DEXAMETHASONE [Concomitant]
     Dosage: 4 MG 2X ON 23-MAR AND 24-MAR-2005; 8 MG ON 05-APR-2005; 4 MG 2X ON 06-APR AND 1X ON 07-APR-2005
     Dates: start: 20050322, end: 20050322
  6. UROMITEXAN [Concomitant]
     Dosage: ALSO 1 G ON 05-APR-2005
     Dates: start: 20050322, end: 20050322
  7. CIPROFLOXACIN HCL [Concomitant]
     Indication: PROPHYLAXIS
     Dosage: DAY 5 TO DAY 12
     Dates: start: 20050409
  8. PEGFILGRASTIM [Concomitant]
     Dosage: ALSO ADMINISTERED FROM 29-DEC-2004 UNTIL 20-APR-2005.
     Route: 058
     Dates: start: 20041229, end: 20050420
  9. BERLTHYROX [Concomitant]
  10. NEURONTIN [Concomitant]
  11. BISOPROLOL FUMARATE [Concomitant]

REACTIONS (4)
  - ANAEMIA [None]
  - LEUKOPENIA [None]
  - PANCYTOPENIA [None]
  - SUBCLAVIAN VEIN THROMBOSIS [None]
